FAERS Safety Report 8465315-9 (Version None)
Quarter: 2012Q2

REPORT INFORMATION
  Report Type: 
  Country: None (occurrence: None)
  Receive Date: 20120626
  Receipt Date: 20120618
  Transmission Date: 20120825
  Serious: Yes (Hospitalization, Other)
  Sender: FDA-Public Use
  Company Number: US-BAYER-2012-061605

PATIENT
  Age: 47 Year
  Sex: Female

DRUGS (6)
  1. YASMIN [Suspect]
  2. SYNTHROID [Concomitant]
     Dosage: 75 MCG, DAILY
  3. AMPHETAMINE AND DEXTROAMPHETAMINE SALTS [Concomitant]
     Dosage: 20 MG, UNK
  4. DROSPIRENONE AND ETHINYL ESTRADIOL [Suspect]
  5. YAZ [Suspect]
  6. TRAMADOL HCL [Concomitant]
     Dosage: 50 MG, UNK

REACTIONS (4)
  - CHOLELITHIASIS [None]
  - DEEP VEIN THROMBOSIS [None]
  - TRANSIENT ISCHAEMIC ATTACK [None]
  - PULMONARY EMBOLISM [None]
